FAERS Safety Report 8478691-8 (Version None)
Quarter: 2012Q2

REPORT INFORMATION
  Report Type: 
  Country: None (occurrence: None)
  Receive Date: 20120629
  Receipt Date: 20120627
  Transmission Date: 20120825
  Serious: Yes (Hospitalization)
  Sender: FDA-Public Use
  Company Number: CA-ROCHE-1082591

PATIENT
  Sex: Female
  Weight: 69.916 kg

DRUGS (9)
  1. TRAZODONE HCL [Concomitant]
  2. ACTEMRA [Suspect]
     Indication: RHEUMATOID ARTHRITIS
     Route: 042
     Dates: start: 20110414
  3. EFFEXOR [Concomitant]
  4. WELLBUTRIN [Concomitant]
  5. ARTHROTEC [Concomitant]
  6. TYLENOL W/ CODEINE NO. 3 [Concomitant]
  7. TOPAMAX [Concomitant]
  8. ASPIRIN [Concomitant]
  9. GABAPENTIN [Concomitant]

REACTIONS (1)
  - PANCREATITIS [None]
